FAERS Safety Report 14435946 (Version 1)
Quarter: 2018Q1

REPORT INFORMATION
  Report Type: Spontaneous
  Country: US (occurrence: US)
  Receive Date: 20180124
  Receipt Date: 20180124
  Transmission Date: 20180509
  Serious: Yes (Disabling, Other)
  Sender: FDA-Public Use
  Company Number: None

PATIENT
  Age: 20 Year
  Sex: Female
  Weight: 74.25 kg

DRUGS (2)
  1. ASHLYNA [Suspect]
     Active Substance: ETHINYL ESTRADIOL\LEVONORGESTREL
  2. EX-LAX IRON SUPPLEMENTS [Concomitant]

REACTIONS (8)
  - Quality of life decreased [None]
  - Vaginal haemorrhage [None]
  - Mood swings [None]
  - Dysmenorrhoea [None]
  - Drug ineffective [None]
  - Weight increased [None]
  - Depression [None]
  - Migraine [None]

NARRATIVE: CASE EVENT DATE: 20171114
